FAERS Safety Report 7003896-2 (Version None)
Quarter: 2010Q3

REPORT INFORMATION
  Report Type: 
  Country: None (occurrence: None)
  Receive Date: 20100920
  Receipt Date: 20091211
  Transmission Date: 20110219
  Serious: No
  Sender: FDA-Public Use
  Company Number: US-WYE-H12631309

PATIENT
  Sex: Female
  Weight: 65.83 kg

DRUGS (4)
  1. PRISTIQ [Suspect]
     Indication: DEPRESSION
     Route: 048
     Dates: start: 20090901
  2. CLONAZEPAM [Concomitant]
  3. ZANTAC [Concomitant]
  4. VYTORIN [Concomitant]

REACTIONS (1)
  - URTICARIA [None]
